FAERS Safety Report 25324831 (Version 1)
Quarter: 2025Q2

REPORT INFORMATION
  Report Type: Spontaneous
  Country: MT (occurrence: MT)
  Receive Date: 20250516
  Receipt Date: 20250516
  Transmission Date: 20250717
  Serious: Yes (Other)
  Sender: SANOFI AVENTIS
  Company Number: MT-SA-2025SA137241

PATIENT
  Sex: Male

DRUGS (9)
  1. ISATUXIMAB [Suspect]
     Active Substance: ISATUXIMAB
     Indication: Plasma cell myeloma
     Dates: start: 202502, end: 202502
  2. ISATUXIMAB [Suspect]
     Active Substance: ISATUXIMAB
     Dates: start: 2025, end: 2025
  3. ISATUXIMAB [Suspect]
     Active Substance: ISATUXIMAB
     Dates: start: 202504, end: 202504
  4. KYPROLIS [Concomitant]
     Active Substance: CARFILZOMIB
     Indication: Plasma cell myeloma
     Dates: start: 202502, end: 202502
  5. KYPROLIS [Concomitant]
     Active Substance: CARFILZOMIB
     Dates: start: 2025, end: 2025
  6. KYPROLIS [Concomitant]
     Active Substance: CARFILZOMIB
     Dates: start: 202504, end: 202504
  7. DEXAMETHASONE [Concomitant]
     Active Substance: DEXAMETHASONE
     Indication: Plasma cell myeloma
     Dates: start: 202502, end: 202502
  8. DEXAMETHASONE [Concomitant]
     Active Substance: DEXAMETHASONE
     Dates: start: 2025, end: 2025
  9. DEXAMETHASONE [Concomitant]
     Active Substance: DEXAMETHASONE
     Dates: start: 202504, end: 202504

REACTIONS (1)
  - Plasma cell myeloma [Not Recovered/Not Resolved]

NARRATIVE: CASE EVENT DATE: 20250101
